FAERS Safety Report 9235761 (Version 1)
Quarter: 2013Q2

REPORT INFORMATION
  Report Type: Spontaneous
  Country: US (occurrence: US)
  Receive Date: 20130417
  Receipt Date: 20130417
  Transmission Date: 20140414
  Serious: Yes (Other)
  Sender: FDA-Public Use
  Company Number: PHEH2013US003933

PATIENT
  Sex: Male

DRUGS (11)
  1. GLEEVEC [Suspect]
     Dosage: 600 MG, QD
  2. GLEEVEC [Suspect]
  3. TOPROL [Concomitant]
  4. LOPID [Concomitant]
  5. ASPIRIN [Concomitant]
     Dosage: 81 MG
  6. LISINOPRIL [Concomitant]
     Dosage: 10 MG
  7. FLOMAX ^BOEHRINGER INGELHEIM^ [Concomitant]
  8. BUSPIRONE [Concomitant]
     Dosage: 10 MG, TID
  9. FISH OIL [Concomitant]
  10. METOPROLOL [Concomitant]
  11. TRAZODONE [Concomitant]

REACTIONS (6)
  - Bone disorder [Unknown]
  - Bone density abnormal [Unknown]
  - Pain in extremity [Unknown]
  - Arthralgia [Unknown]
  - No therapeutic response [Unknown]
  - Tenderness [Unknown]
